FAERS Safety Report 5477180-2 (Version None)
Quarter: 2007Q4

REPORT INFORMATION
  Report Type: 
  Country: None (occurrence: None)
  Receive Date: 20071004
  Receipt Date: 20071001
  Transmission Date: 20080405
  Serious: Yes (Other)
  Sender: FDA-Public Use
  Company Number: A0685735A

PATIENT
  Age: 50 Year
  Sex: Male

DRUGS (4)
  1. AVANDIA [Suspect]
     Dosage: 4MG TWICE PER DAY
     Route: 048
     Dates: start: 20061201
  2. CRESTOR [Concomitant]
     Dosage: 5MG PER DAY
  3. ASPIRIN [Concomitant]
     Dosage: 81MG PER DAY
  4. DIABETA [Concomitant]
     Dosage: 10MG TWICE PER DAY

REACTIONS (1)
  - MYOCARDIAL INFARCTION [None]
